FAERS Safety Report 4820889-1 (Version None)
Quarter: 2005Q4

REPORT INFORMATION
  Report Type: 
  Country: None (occurrence: None)
  Receive Date: 20051103
  Receipt Date: 20051024
  Transmission Date: 20060501
  Serious: Yes (Other)
  Sender: FDA-Public Use
  Company Number: TUK2005A00077

PATIENT
  Age: 66 Year
  Sex: Female

DRUGS (8)
  1. ACTOS [Suspect]
     Indication: DIABETES MELLITUS INADEQUATE CONTROL
     Route: 048
     Dates: start: 20050601, end: 20051018
  2. ASPIRIN [Concomitant]
  3. LOSARTAN POTASSIUM [Concomitant]
  4. ATORVASTATIN CALCIUM [Concomitant]
  5. GLICLAZIDE (GLICLAZIDE) [Concomitant]
  6. BENDROFLUMETHIAZIDE (BENDROFLUMETHIAZIDE) [Concomitant]
  7. PNEUMOVAX II VACCINE (PNEUMOCOCCAL VACCINE) [Concomitant]
  8. FLUARIX VACCINE (INFLUENZA VIRUS VACCINE POLYVALENT) [Concomitant]

REACTIONS (3)
  - HAEMATURIA [None]
  - PAIN [None]
  - URINARY TRACT INFECTION [None]
